FAERS Safety Report 23621133 (Version 3)
Quarter: 2025Q1

REPORT INFORMATION
  Report Type: Report from Study
  Country: US (occurrence: US)
  Receive Date: 20240312
  Receipt Date: 20250311
  Transmission Date: 20250408
  Serious: No
  Sender: TAKEDA
  Company Number: US-TAKEDA-2020TUS048923

PATIENT
  Sex: Male

DRUGS (3)
  1. VEDOLIZUMAB [Suspect]
     Active Substance: VEDOLIZUMAB
     Indication: Colitis ulcerative
  2. VEDOLIZUMAB [Suspect]
     Active Substance: VEDOLIZUMAB
     Indication: Colitis ulcerative
     Dosage: 108 MILLIGRAM, Q2WEEKS
  3. VEDOLIZUMAB [Suspect]
     Active Substance: VEDOLIZUMAB

REACTIONS (3)
  - Drug effect less than expected [Recovering/Resolving]
  - Malaise [Unknown]
  - Nasopharyngitis [Unknown]
